FAERS Safety Report 9675883 (Version 1)
Quarter: 2013Q4

REPORT INFORMATION
  Report Type: Spontaneous
  Country: TR (occurrence: TR)
  Receive Date: 20131107
  Receipt Date: 20131107
  Transmission Date: 20140711
  Serious: Yes (Other)
  Sender: FDA-Public Use
  Company Number: TR-GLAXOSMITHKLINE-B0940022A

PATIENT
  Sex: 0

DRUGS (5)
  1. SALBUTAMOL SULPHATE [Suspect]
     Indication: ASTHMA
     Route: 055
  2. IPRATROPIUM BROMIDE [Suspect]
     Indication: ASTHMA
     Route: 065
  3. MONTELUKAST SODIUM [Suspect]
     Indication: ASTHMA
     Dosage: 10MGD PER DAY
     Route: 065
  4. VITAMINS [Suspect]
     Indication: PRODUCT USED FOR UNKNOWN INDICATION
     Route: 065
  5. FOLIC ACID [Suspect]
     Indication: PRODUCT USED FOR UNKNOWN INDICATION
     Route: 065

REACTIONS (3)
  - Foetal death [Unknown]
  - Abortion missed [Unknown]
  - Foetal exposure during pregnancy [Unknown]
